FAERS Safety Report 6480532-5 (Version None)
Quarter: 2009Q4

REPORT INFORMATION
  Report Type: 
  Country: None (occurrence: None)
  Receive Date: 20091202
  Receipt Date: 20091130
  Transmission Date: 20100525
  Serious: Yes (Death)
  Sender: FDA-Public Use
  Company Number: SPV1-2009-02269

PATIENT
  Age: 77 Year
  Sex: Male

DRUGS (12)
  1. FOSRENOL [Suspect]
     Indication: HYPERPARATHYROIDISM SECONDARY
     Dosage: 500 MG, 3X/DAY:TID WITH MEALS, ORAL
     Route: 048
     Dates: start: 20090906, end: 20091001
  2. FOSRENOL [Suspect]
     Indication: HYPERPHOSPHATAEMIA
     Dosage: 500 MG, 3X/DAY:TID WITH MEALS, ORAL
     Route: 048
     Dates: start: 20090906, end: 20091001
  3. SYNTHROID [Concomitant]
  4. EPOGEN [Concomitant]
  5. HEPARIN [Concomitant]
  6. NEURONTIN [Concomitant]
  7. WHEY PROTEIN POWDER [Concomitant]
  8. WARFARIN SODIUM [Concomitant]
  9. ALLEGRA /01314201/ (FEXOFENADINE) [Concomitant]
  10. LASIX [Concomitant]
  11. ASPIRIN [Concomitant]
  12. ATENOLOL [Concomitant]

REACTIONS (4)
  - ACUTE MYOCARDIAL INFARCTION [None]
  - HEPATIC ENZYME INCREASED [None]
  - INTERNATIONAL NORMALISED RATIO INCREASED [None]
  - PROTHROMBIN TIME RATIO INCREASED [None]
